FAERS Safety Report 20736485 (Version 1)
Quarter: 2022Q2

REPORT INFORMATION
  Report Type: Report from Study
  Country: BR (occurrence: BR)
  Receive Date: 20220421
  Receipt Date: 20220421
  Transmission Date: 20220721
  Serious: Yes (Other)
  Sender: FDA-Public Use
  Company Number: BR-JNJFOC-20220428446

PATIENT
  Sex: Female
  Weight: 84 kg

DRUGS (8)
  1. INFLIXIMAB [Suspect]
     Active Substance: INFLIXIMAB
     Indication: Rheumatoid arthritis
     Route: 042
     Dates: start: 20141001
  2. METHOTREXATE [Concomitant]
     Active Substance: METHOTREXATE
  3. METAMIZOLE SODIUM [Concomitant]
     Active Substance: METAMIZOLE SODIUM
     Indication: Pain
  4. HYDROCHLOROTHIAZIDE [Concomitant]
     Active Substance: HYDROCHLOROTHIAZIDE
  5. CAPTOPRIL [Concomitant]
     Active Substance: CAPTOPRIL
  6. ATENOLOL [Concomitant]
     Active Substance: ATENOLOL
  7. METFORMIN [Concomitant]
     Active Substance: METFORMIN HYDROCHLORIDE
  8. SERTRALINE [Concomitant]
     Active Substance: SERTRALINE HYDROCHLORIDE

REACTIONS (5)
  - COVID-19 pneumonia [Unknown]
  - Cataract [Unknown]
  - Rheumatoid arthritis [Unknown]
  - Alopecia [Unknown]
  - Therapeutic product effect incomplete [Unknown]

NARRATIVE: CASE EVENT DATE: 20220201
